FAERS Safety Report 4796396-1 (Version None)
Quarter: 2005Q4

REPORT INFORMATION
  Report Type: 
  Country: None (occurrence: None)
  Receive Date: 20051013
  Receipt Date: 20051004
  Transmission Date: 20060501
  Serious: Yes (Hospitalization, Other)
  Sender: FDA-Public Use
  Company Number: PHEH2005US11055

PATIENT
  Age: 33 Year
  Sex: Female

DRUGS (2)
  1. LOTREL [Suspect]
     Indication: HYPERTENSION
     Dosage: 10/20MG, QD
     Route: 048
  2. COREG [Suspect]
     Indication: HYPERTENSION
     Dosage: UNK, QD
     Route: 048

REACTIONS (4)
  - BLOOD CREATININE INCREASED [None]
  - DEPRESSION [None]
  - OVERDOSE [None]
  - RENAL IMPAIRMENT [None]
